FAERS Safety Report 25348170 (Version 1)
Quarter: 2025Q2

REPORT INFORMATION
  Report Type: Spontaneous
  Country: CN (occurrence: CN)
  Receive Date: 20250522
  Receipt Date: 20250522
  Transmission Date: 20250717
  Serious: Yes (Hospitalization, Other)
  Sender: ELI LILLY AND COMPANY
  Company Number: CN-ELI_LILLY_AND_COMPANY-CN202505016328

PATIENT
  Age: 45 Year
  Sex: Male
  Weight: 66 kg

DRUGS (2)
  1. CYRAMZA [Suspect]
     Active Substance: RAMUCIRUMAB
     Indication: Gastric cancer stage IV
     Dosage: 500 MG, 2/M (ONCE IN FOURTEEN DAYS)
     Route: 041
     Dates: start: 20250422, end: 20250422
  2. SODIUM CHLORIDE [Concomitant]
     Active Substance: SODIUM CHLORIDE
     Indication: Medication dilution
     Route: 041
     Dates: start: 20250422, end: 20250422

REACTIONS (4)
  - Proteinuria [Recovering/Resolving]
  - Ascites [Recovering/Resolving]
  - Hypoproteinaemia [Recovering/Resolving]
  - Oedema peripheral [Recovering/Resolving]

NARRATIVE: CASE EVENT DATE: 20250503
